FAERS Safety Report 24030737 (Version 1)
Quarter: 2024Q2

REPORT INFORMATION
  Report Type: Spontaneous
  Country: US (occurrence: US)
  Receive Date: 20240628
  Receipt Date: 20240628
  Transmission Date: 20240716
  Serious: No
  Sender: FDA-Public Use
  Company Number: US-PFIZER INC-202400202613

PATIENT
  Age: 60 Year
  Sex: Female

DRUGS (11)
  1. IBRANCE [Suspect]
     Active Substance: PALBOCICLIB
     Dosage: 75 MG, CYCLIC, 21 DAYS ON AND 7 DAYS OFF
     Route: 048
     Dates: start: 20220119
  2. OMEPRAZOLE [Suspect]
     Active Substance: OMEPRAZOLE
  3. LORATADINE [Concomitant]
     Active Substance: LORATADINE
  4. AMLODIPINE BESYLATE [Concomitant]
     Active Substance: AMLODIPINE BESYLATE
  5. JANUMET [Concomitant]
     Active Substance: METFORMIN HYDROCHLORIDE\SITAGLIPTIN PHOSPHATE
  6. LEVOTHYROXINE [Concomitant]
     Active Substance: LEVOTHYROXINE\LEVOTHYROXINE SODIUM
  7. LISINOPRIL [Concomitant]
     Active Substance: LISINOPRIL
  8. VITAMIN C [Concomitant]
     Active Substance: ASCORBIC ACID
  9. LORAZEPAM [Concomitant]
     Active Substance: LORAZEPAM
  10. CHOLECALCIFEROL [Concomitant]
     Active Substance: CHOLECALCIFEROL
  11. LETROZOLE [Concomitant]
     Active Substance: LETROZOLE

REACTIONS (1)
  - Gastrooesophageal reflux disease [Not Recovered/Not Resolved]
